FAERS Safety Report 7580599-7 (Version None)
Quarter: 2011Q2

REPORT INFORMATION
  Report Type: 
  Country: None (occurrence: None)
  Receive Date: 20110629
  Receipt Date: 20110622
  Transmission Date: 20111010
  Serious: Yes (Other)
  Sender: FDA-Public Use
  Company Number: B0728783A

PATIENT
  Age: 51 Year
  Sex: Female

DRUGS (8)
  1. CEFTAZIDIME SODIUM [Suspect]
     Dosage: 1G PER DAY
     Route: 042
     Dates: start: 20100301, end: 20100301
  2. UNKNOWN DRUG [Suspect]
     Route: 065
  3. UNKNOWN DRUG [Suspect]
     Route: 065
  4. UNKNOWN DRUG [Suspect]
     Route: 065
  5. UNKNOWN DRUG [Suspect]
     Route: 065
  6. UNKNOWN DRUG [Suspect]
     Route: 065
  7. UNKNOWN DRUG [Suspect]
     Route: 065
  8. UNKNOWN DRUG [Suspect]
     Route: 065

REACTIONS (2)
  - OCULOMUCOCUTANEOUS SYNDROME [None]
  - LIVER DISORDER [None]
